FAERS Safety Report 5224523-0 (Version None)
Quarter: 2007Q1

REPORT INFORMATION
  Report Type: 
  Country: None (occurrence: None)
  Receive Date: 20070130
  Receipt Date: 20070118
  Transmission Date: 20070707
  Serious: Yes (Life-Threatening, Other)
  Sender: FDA-Public Use
  Company Number: US-PFIZER INC-2007005844

PATIENT
  Age: 65 Year
  Sex: Male
  Weight: 125.6 kg

DRUGS (8)
  1. ZYVOX [Suspect]
     Indication: INFECTION
     Route: 042
     Dates: start: 20061221, end: 20070115
  2. DEMEROL [Concomitant]
  3. METRONIDAZOLE [Concomitant]
  4. LEVAQUIN [Concomitant]
  5. DRUG, UNSPECIFIED [Concomitant]
  6. SOLU-CORTEF [Concomitant]
  7. PROTONIX [Concomitant]
  8. VALIUM [Concomitant]

REACTIONS (2)
  - ILL-DEFINED DISORDER [None]
  - THROMBOCYTOPENIA [None]
